FAERS Safety Report 5831160-3 (Version None)
Quarter: 2008Q3

REPORT INFORMATION
  Report Type: 
  Country: None (occurrence: None)
  Receive Date: 20080801
  Receipt Date: 20080506
  Transmission Date: 20090109
  Serious: Yes (Hospitalization)
  Sender: FDA-Public Use
  Company Number: US-BRISTOL-MYERS SQUIBB COMPANY-14177877

PATIENT
  Age: 64 Year
  Sex: Female

DRUGS (5)
  1. WARFARIN SODIUM [Suspect]
  2. ARAVA [Suspect]
  3. METHOTREXATE [Concomitant]
  4. PREDNISONE [Concomitant]
  5. LIPITOR [Concomitant]

REACTIONS (4)
  - COAGULATION TIME PROLONGED [None]
  - FAECES DISCOLOURED [None]
  - HAEMORRHAGE [None]
  - INTERNATIONAL NORMALISED RATIO INCREASED [None]
